FAERS Safety Report 18474886 (Version 1)
Quarter: 2020Q4

REPORT INFORMATION
  Report Type: Spontaneous
  Country: US (occurrence: US)
  Receive Date: 20201106
  Receipt Date: 20201106
  Transmission Date: 20210114
  Serious: Yes (Disabling)
  Sender: FDA-Public Use
  Company Number: US-ANIPHARMA-2020-US-015521

PATIENT
  Age: 73 Year
  Sex: Female

DRUGS (9)
  1. DIPHENOXYLATE HYDROCHLORIDE + ATROPINE SULFATE TABLETS USP [Suspect]
     Active Substance: ATROPINE SULFATE\DIPHENOXYLATE HYDROCHLORIDE
     Indication: DIARRHOEA
     Dosage: AS NEEDED
     Route: 048
     Dates: start: 202004, end: 20200720
  2. ALBUTEROL INHALER [Concomitant]
     Active Substance: ALBUTEROL
     Route: 055
  3. PLAVIX [Concomitant]
     Active Substance: CLOPIDOGREL BISULFATE
  4. XARELTO [Concomitant]
     Active Substance: RIVAROXABAN
  5. MIRTAZAPINE. [Concomitant]
     Active Substance: MIRTAZAPINE
  6. INHALED OXYGEN [Concomitant]
  7. BEVESPI INHALER [Concomitant]
     Route: 055
  8. PRILOSEC [Concomitant]
     Active Substance: OMEPRAZOLE MAGNESIUM
  9. FLOVENT [Concomitant]
     Active Substance: FLUTICASONE PROPIONATE
     Route: 055

REACTIONS (1)
  - Vision blurred [Recovered/Resolved with Sequelae]

NARRATIVE: CASE EVENT DATE: 202005
